FAERS Safety Report 7356047-9 (Version None)
Quarter: 2011Q1

REPORT INFORMATION
  Report Type: 
  Country: None (occurrence: None)
  Receive Date: 20110310
  Receipt Date: 20110310
  Transmission Date: 20110831
  Serious: Yes (Other)
  Sender: FDA-Public Use
  Company Number: None

PATIENT
  Age: 51 Year
  Sex: Female
  Weight: 113.3993 kg

DRUGS (5)
  1. MAGNESIUM [Suspect]
  2. SUCCINYLCHOLINE CHLORIDE [Suspect]
     Indication: NEUROMUSCULAR BLOCKADE
     Dosage: ? IV
     Route: 042
     Dates: start: 20110210, end: 20110210
  3. VERAPAMIL [Suspect]
  4. ELAVIL [Suspect]
  5. REGLAN [Suspect]

REACTIONS (4)
  - ARTHRALGIA [None]
  - ACTIVITIES OF DAILY LIVING IMPAIRED [None]
  - MYALGIA [None]
  - COORDINATION ABNORMAL [None]
